FAERS Safety Report 6149785-7 (Version None)
Quarter: 2009Q2

REPORT INFORMATION
  Report Type: 
  Country: None (occurrence: None)
  Receive Date: 20090407
  Receipt Date: 20090407
  Transmission Date: 20091009
  Serious: Yes (Other)
  Sender: FDA-Public Use
  Company Number: None

PATIENT
  Age: 54 Year
  Weight: 53.5244 kg

DRUGS (2)
  1. GEMZAR [Suspect]
     Indication: COLON CANCER
     Dosage: 1580 MG EVERY 3 WEEKS DAY IV
     Route: 042
     Dates: start: 20080310, end: 20090406
  2. GEMZAR [Suspect]
     Indication: NEUROENDOCRINE TUMOUR
     Dosage: 1580 MG EVERY 3 WEEKS DAY IV
     Route: 042
     Dates: start: 20080310, end: 20090406

REACTIONS (2)
  - NAUSEA [None]
  - VOMITING [None]
